FAERS Safety Report 7691636-3 (Version None)
Quarter: 2011Q3

REPORT INFORMATION
  Report Type: 
  Country: None (occurrence: None)
  Receive Date: 20110818
  Receipt Date: 20110815
  Transmission Date: 20111222
  Serious: Yes (Hospitalization)
  Sender: FDA-Public Use
  Company Number: CA-BRISTOL-MYERS SQUIBB COMPANY-15945025

PATIENT
  Age: 67 Year
  Sex: Female

DRUGS (10)
  1. GLYBURIDE [Concomitant]
     Dates: start: 20110729, end: 20110730
  2. COLACE [Concomitant]
     Dates: start: 20110630
  3. PROCHLORPERAZINE [Concomitant]
     Dates: start: 20110701
  4. NORVASC [Concomitant]
     Dates: start: 20070101
  5. PROCHLORPERAZINE [Concomitant]
     Dates: start: 20110701
  6. BMS754807 [Suspect]
     Indication: NEOPLASM
     Dosage: INTERRUPTED ON 30JUL2011 NO OF COURSES: 2
     Route: 048
     Dates: start: 20110630
  7. CARBOPLATIN [Suspect]
     Indication: NEOPLASM
     Dosage: INTERRUPTED ON 19JUL2011 NO OF COURSES: 02
     Route: 042
     Dates: start: 20110629
  8. DIOVAN [Concomitant]
     Dates: start: 20070101
  9. PACLITAXEL [Suspect]
     Indication: NEOPLASM
     Dosage: INTERRUPTED ON 19JUL2011 NO OF COURSES: 02
     Route: 042
     Dates: start: 20110629
  10. HYDROCHLOROTHIAZIDE [Concomitant]
     Dates: start: 20070101

REACTIONS (3)
  - HYPERGLYCAEMIA [None]
  - NEUTROPENIA [None]
  - DEHYDRATION [None]
